FAERS Safety Report 6910127-8 (Version None)
Quarter: 2010Q3

REPORT INFORMATION
  Report Type: 
  Country: None (occurrence: None)
  Receive Date: 20100806
  Receipt Date: 20100802
  Transmission Date: 20110219
  Serious: Yes (Death, Hospitalization, Disabling)
  Sender: FDA-Public Use
  Company Number: US-WYE-H15595910

PATIENT
  Sex: Male
  Weight: 79 kg

DRUGS (17)
  1. TORISEL [Suspect]
     Indication: RENAL CELL CARCINOMA
     Route: 042
     Dates: start: 20100525, end: 20100608
  2. ATENOLOL [Concomitant]
     Indication: HYPERTENSION
     Route: 048
  3. ARIPIPRAZOLE [Concomitant]
     Indication: POST-TRAUMATIC STRESS DISORDER
     Route: 048
  4. ACETYLSALICYLIC ACID SRT [Concomitant]
     Route: 048
  5. DOCUSATE [Concomitant]
     Indication: CONSTIPATION
     Route: 048
  6. EPOGEN [Concomitant]
     Indication: ANAEMIA
     Dosage: 10000 UNIT EVERY 1 WK
     Route: 065
  7. ERGOCALCIFEROL [Concomitant]
     Indication: VITAMIN D DEFICIENCY
     Dosage: 325 BID
     Route: 065
  8. FINASTERIDE [Concomitant]
     Dosage: 5 MG DAILY
     Route: 065
  9. FOLIC ACID [Concomitant]
     Dosage: 1 MG DAILY
     Route: 065
  10. LEVOTHYROXINE SODIUM [Concomitant]
     Route: 065
  11. MEGESTROL [Concomitant]
     Route: 065
  12. FERROUS SULFATE [Concomitant]
     Dosage: ^325^ BID
     Route: 065
  13. VITAMIN TAB [Concomitant]
     Dosage: 1 QD
     Route: 065
  14. OMEPRAZOLE [Concomitant]
     Dosage: ^20^ BID
     Route: 065
  15. PROCHLORPERAZINE [Concomitant]
     Dosage: ^5^ QD
     Route: 065
  16. SODIUM BICARBONATE [Concomitant]
     Dosage: DOSE ILLEGIBLE; QID
     Route: 065
  17. ALLOPURINOL [Concomitant]
     Indication: GOUT
     Route: 048

REACTIONS (3)
  - CLOSTRIDIUM DIFFICILE COLITIS [None]
  - HYPOVOLAEMIA [None]
  - RENAL FAILURE ACUTE [None]
